FAERS Safety Report 10052410 (Version 2)
Quarter: 2014Q2

REPORT INFORMATION
  Report Type: Spontaneous
  Country: US (occurrence: US)
  Receive Date: 20140402
  Receipt Date: 20140416
  Transmission Date: 20141212
  Serious: Yes (Disabling)
  Sender: FDA-Public Use
  Company Number: US-JNJFOC-20140314253

PATIENT
  Age: 21 Year
  Sex: Male

DRUGS (5)
  1. INVEGA SUSTENNA [Suspect]
     Indication: SCHIZOPHRENIA
     Route: 030
     Dates: start: 201210, end: 201403
  2. TRAZODONE [Concomitant]
     Route: 065
     Dates: start: 201311
  3. BENZTROPINE [Concomitant]
     Route: 065
     Dates: start: 201210
  4. DIVALPROEX [Concomitant]
     Route: 065
  5. QUETIAPINE [Concomitant]
     Route: 065
     Dates: start: 201312

REACTIONS (1)
  - Extrapyramidal disorder [Recovering/Resolving]
